FAERS Safety Report 8560308-5 (Version None)
Quarter: 2012Q3

REPORT INFORMATION
  Report Type: 
  Country: None (occurrence: None)
  Receive Date: 20120802
  Receipt Date: 20120719
  Transmission Date: 20120928
  Serious: Yes (Hospitalization)
  Sender: FDA-Public Use
  Company Number: BE-ELI_LILLY_AND_COMPANY-BE201207006286

PATIENT
  Sex: Male
  Weight: 70 kg

DRUGS (2)
  1. OLANZAPINE [Suspect]
     Indication: SCHIZOPHRENIA
     Dosage: 405 MG, UNK
     Route: 030
     Dates: start: 20120611
  2. ZYPREXA [Suspect]
     Indication: SCHIZOPHRENIA
     Dosage: 10MG, DAILY
     Route: 048
     Dates: end: 20120612

REACTIONS (3)
  - SUICIDAL IDEATION [None]
  - PSYCHOTIC DISORDER [None]
  - DRUG INEFFECTIVE [None]
